FAERS Safety Report 5915835-3 (Version None)
Quarter: 2008Q4

REPORT INFORMATION
  Report Type: 
  Country: None (occurrence: None)
  Receive Date: 20081010
  Receipt Date: 20080930
  Transmission Date: 20090506
  Serious: Yes (Death, Hospitalization)
  Sender: FDA-Public Use
  Company Number: US-PFIZER INC-2008082748

PATIENT
  Age: 77 Year
  Sex: Female

DRUGS (9)
  1. HEPARIN SODIUM [Suspect]
     Indication: DEEP VEIN THROMBOSIS
     Route: 042
  2. HEPARIN-FRACTION [Suspect]
     Indication: DEEP VEIN THROMBOSIS
  3. LIDOCAINE [Concomitant]
  4. EPINEPHRINE [Concomitant]
  5. PROPOFOL [Concomitant]
     Indication: ANAESTHESIA
  6. FENTANYL [Concomitant]
     Indication: ANAESTHESIA
  7. CISATRACURIUM [Concomitant]
  8. NITROUS OXIDE [Concomitant]
     Indication: ANAESTHESIA
  9. OXYGEN [Concomitant]

REACTIONS (1)
  - HEPARIN-INDUCED THROMBOCYTOPENIA [None]
